FAERS Safety Report 19754906 (Version 1)
Quarter: 2021Q3

REPORT INFORMATION
  Report Type: Spontaneous
  Country: US (occurrence: US)
  Receive Date: 20210824
  Receipt Date: 20210824
  Transmission Date: 20211014
  Serious: No
  Sender: FDA-Public Use
  Company Number: None

PATIENT
  Age: 68 Year
  Sex: Female
  Weight: 102.97 kg

DRUGS (1)
  1. STELARA [Suspect]
     Active Substance: USTEKINUMAB
     Indication: PSORIASIS
     Dosage: INJECT 90MG SUBCUTANNEOUSLY ON DAY 0 AND DAY 28 AS DIRECTED
     Route: 058
     Dates: start: 201805

REACTIONS (2)
  - Condition aggravated [None]
  - COVID-19 [None]
